FAERS Safety Report 12217259 (Version 1)
Quarter: 2016Q1

REPORT INFORMATION
  Report Type: Spontaneous
  Country: US (occurrence: None)
  Receive Date: 20160328
  Receipt Date: 20160328
  Transmission Date: 20160526
  Serious: No
  Sender: FDA-Public Use
  Company Number: None

PATIENT
  Age: 50 Year
  Sex: Male

DRUGS (2)
  1. INVOKANA [Suspect]
     Active Substance: CANAGLIFLOZIN
  2. TRULICITY [Suspect]
     Active Substance: DULAGLUTIDE

REACTIONS (2)
  - Glycosylated haemoglobin increased [None]
  - Blood glucose increased [None]
